FAERS Safety Report 10832499 (Version 1)
Quarter: 2015Q1

REPORT INFORMATION
  Report Type: Report from Study
  Country: US (occurrence: US)
  Receive Date: 20150219
  Receipt Date: 20150219
  Transmission Date: 20150721
  Serious: No
  Sender: FDA-Public Use
  Company Number: US-ABBVIE-14P-163-1197845-00

PATIENT
  Age: 66 Year
  Sex: Male

DRUGS (4)
  1. FLOMAX [Concomitant]
     Active Substance: TAMSULOSIN HYDROCHLORIDE
     Indication: PRODUCT USED FOR UNKNOWN INDICATION
  2. HUMIRA [Suspect]
     Active Substance: ADALIMUMAB
     Indication: PSORIASIS
     Dosage: SUNDAY
     Route: 058
     Dates: end: 20140202
  3. BLOOD THINNER [Concomitant]
     Active Substance: UNSPECIFIED INGREDIENT
     Indication: ANTICOAGULANT THERAPY
  4. MIDODRINE [Concomitant]
     Active Substance: MIDODRINE
     Indication: PRODUCT USED FOR UNKNOWN INDICATION

REACTIONS (4)
  - Cough [Recovering/Resolving]
  - Chills [Recovered/Resolved]
  - Headache [Recovered/Resolved]
  - Lethargy [Recovered/Resolved]

NARRATIVE: CASE EVENT DATE: 20140125
